FAERS Safety Report 9775032 (Version 4)
Quarter: 2016Q1

REPORT INFORMATION
  Report Type: Spontaneous
  Country: US (occurrence: US)
  Receive Date: 20131220
  Receipt Date: 20160216
  Transmission Date: 20160526
  Serious: Yes (Hospitalization, Other)
  Sender: FDA-Public Use
  Company Number: US-GLAXOSMITHKLINE-A1040638A

PATIENT
  Sex: Male

DRUGS (2)
  1. AVODART [Suspect]
     Active Substance: DUTASTERIDE
     Indication: BENIGN PROSTATIC HYPERPLASIA
     Dosage: UNK UNK, 1D
     Route: 048
     Dates: start: 20130523
  2. PROPECIA [Suspect]
     Active Substance: FINASTERIDE
     Indication: PRODUCT USED FOR UNKNOWN INDICATION
     Dosage: UNK

REACTIONS (15)
  - Prostate cancer [Recovering/Resolving]
  - Insomnia [Unknown]
  - Alopecia [Not Recovered/Not Resolved]
  - Penis disorder [Unknown]
  - Nausea [Unknown]
  - Nipple pain [Unknown]
  - Erection increased [Unknown]
  - Feeling abnormal [Recovered/Resolved]
  - Burning sensation [Not Recovered/Not Resolved]
  - Pruritus [Not Recovered/Not Resolved]
  - Seborrhoea [Recovering/Resolving]
  - Drug dose omission [Unknown]
  - Drug ineffective [Unknown]
  - Blood testosterone increased [Recovered/Resolved]
  - Dizziness [Recovered/Resolved]
